FAERS Safety Report 16590622 (Version 1)
Quarter: 2019Q3

REPORT INFORMATION
  Report Type: Spontaneous
  Country: US (occurrence: US)
  Receive Date: 20190717
  Receipt Date: 20190717
  Transmission Date: 20191004
  Serious: No
  Sender: FDA-Public Use
  Company Number: None

PATIENT
  Age: 33 Year
  Sex: Female
  Weight: 56.25 kg

DRUGS (5)
  1. DAILY VITAMINS [Concomitant]
     Active Substance: VITAMINS
  2. FISH OIL [Concomitant]
     Active Substance: FISH OIL
  3. AMOXICILLIN 500 MG CAPSULE [Suspect]
     Active Substance: AMOXICILLIN SODIUM
     Indication: INFECTION
     Dosage: ?          QUANTITY:21 CAPSULE(S);?
     Route: 048
     Dates: start: 20190708, end: 20190709
  4. AMOXICILLIN 500 MG CAPSULE [Suspect]
     Active Substance: AMOXICILLIN SODIUM
     Indication: ABSCESS ORAL
     Dosage: ?          QUANTITY:21 CAPSULE(S);?
     Route: 048
     Dates: start: 20190708, end: 20190709
  5. CLINDAMYCIN. [Concomitant]
     Active Substance: CLINDAMYCIN

REACTIONS (6)
  - Hypoaesthesia [None]
  - Chills [None]
  - Skin discolouration [None]
  - Dyspnoea [None]
  - Suspected product contamination [None]
  - Abdominal pain [None]

NARRATIVE: CASE EVENT DATE: 20190709
